FAERS Safety Report 21120504 (Version 2)
Quarter: 2022Q3

REPORT INFORMATION
  Report Type: Spontaneous
  Country: JP (occurrence: JP)
  Receive Date: 20220722
  Receipt Date: 20220801
  Transmission Date: 20221027
  Serious: Yes (Hospitalization, Other)
  Sender: FDA-Public Use
  Company Number: JP-GLAXOSMITHKLINE-JP2022JPN108443

PATIENT

DRUGS (2)
  1. VALTREX [Suspect]
     Active Substance: VALACYCLOVIR HYDROCHLORIDE
     Indication: Herpes zoster
     Dosage: 3000 MG/DAY
  2. AMENAMEVIR [Concomitant]
     Active Substance: AMENAMEVIR
     Dosage: 400 MG/DAY

REACTIONS (8)
  - Acute kidney injury [Unknown]
  - Renal impairment [Unknown]
  - Subdural haematoma [Unknown]
  - Decreased appetite [Unknown]
  - Oliguria [Unknown]
  - Balance disorder [Unknown]
  - Fall [Unknown]
  - Contusion [Unknown]
